FAERS Safety Report 7642866-8 (Version None)
Quarter: 2011Q3

REPORT INFORMATION
  Report Type: 
  Country: None (occurrence: None)
  Receive Date: 20110728
  Receipt Date: 20110719
  Transmission Date: 20111222
  Serious: Yes (Other)
  Sender: FDA-Public Use
  Company Number: IN-MPIJNJ-2011-03133

PATIENT

DRUGS (8)
  1. IMMUNOGLOBULINS [Suspect]
     Indication: RENAL TRANSPLANT
     Dosage: 5 G, CYCLIC
     Route: 042
  2. FLUCONAZOLE [Concomitant]
     Indication: FUNGAL INFECTION
     Dosage: 100 MG, QD
  3. VELCADE [Suspect]
     Indication: RENAL TRANSPLANT
     Dosage: 1.3 MG/M2, CYCLIC
  4. GANCICLOVIR [Concomitant]
     Indication: ANTIVIRAL PROPHYLAXIS
     Dosage: 1 G, UNK
  5. ANTI-THYMOCYTE GLOBULIN RABBIT NOS [Suspect]
     Indication: RENAL TRANSPLANT
     Dosage: 1.5 MG/KG, CYCLIC
  6. TRIMETHOPRIM + SULFAMETHOXAZOLE [Concomitant]
     Indication: INFECTION PROPHYLAXIS
  7. MYCOPHENOLATE MOFETIL [Suspect]
     Indication: RENAL TRANSPLANT
     Dosage: 500 MG, UNK
  8. METHYLPREDNISOLONE [Suspect]
     Indication: RENAL TRANSPLANT
     Dosage: 125 MG, CYCLIC
     Route: 042

REACTIONS (2)
  - RENAL NECROSIS [None]
  - GRAFT LOSS [None]
